FAERS Safety Report 5893083-3 (Version None)
Quarter: 2008Q3

REPORT INFORMATION
  Report Type: 
  Country: None (occurrence: None)
  Receive Date: 20080923
  Receipt Date: 20080915
  Transmission Date: 20090109
  Serious: Yes (Hospitalization)
  Sender: FDA-Public Use
  Company Number: CA-JNJFOC-20080501506

PATIENT
  Sex: Male
  Weight: 73 kg

DRUGS (6)
  1. REMICADE [Suspect]
     Indication: CROHN'S DISEASE
     Dosage: 11 INFUSIONS ON UNKNOWN DATES
     Route: 042
  2. REMICADE [Suspect]
     Indication: ANKYLOSING SPONDYLITIS
     Route: 042
  3. ADVIL [Concomitant]
     Indication: HEADACHE
  4. VITAMIN D [Concomitant]
     Route: 050
  5. VITAMIN B-12 [Concomitant]
     Route: 050
  6. TUMS [Concomitant]

REACTIONS (1)
  - BLOOD POTASSIUM DECREASED [None]
